FAERS Safety Report 17191048 (Version 6)
Quarter: 2022Q3

REPORT INFORMATION
  Report Type: Spontaneous
  Country: CA (occurrence: CA)
  Receive Date: 20191223
  Receipt Date: 20220920
  Transmission Date: 20221027
  Serious: Yes (Other)
  Sender: FDA-Public Use
  Company Number: CA-PFIZER INC-2019547851

PATIENT
  Sex: Female

DRUGS (37)
  1. AMLODIPINE BESYLATE [Interacting]
     Active Substance: AMLODIPINE BESYLATE
     Dosage: 1.0 DF, 1X/DAY
     Route: 065
  2. ESTRADIOL [Interacting]
     Active Substance: ESTRADIOL
     Dosage: 1.0 DF, UNK
     Route: 067
  3. PREMARIN [Interacting]
     Active Substance: ESTROGENS, CONJUGATED
     Dosage: 0.5 G, UNK
     Route: 061
  4. PREMARIN [Interacting]
     Active Substance: ESTROGENS, CONJUGATED
     Dosage: UNK
     Route: 061
  5. CLOZAPINE [Interacting]
     Active Substance: CLOZAPINE
     Indication: Schizophrenia
     Dosage: 1.0 DF, 1X/DAY
     Route: 065
  6. CLOZAPINE [Interacting]
     Active Substance: CLOZAPINE
     Dosage: 3.0 DF, 1X/DAY
     Route: 065
  7. CLOZAPINE [Interacting]
     Active Substance: CLOZAPINE
     Dosage: 1.0 DF, 1X/DAY
     Route: 065
  8. CLOZAPINE [Interacting]
     Active Substance: CLOZAPINE
     Dosage: UNK
     Route: 065
  9. ALUMINUM HYDROXIDE\MAGNESIUM HYDROXIDE [Interacting]
     Active Substance: ALUMINUM HYDROXIDE\MAGNESIUM HYDROXIDE
     Indication: Abdominal discomfort
     Dosage: 30.0 ML, UNK
     Route: 048
  10. RANITIDINE [Interacting]
     Active Substance: RANITIDINE
     Dosage: 150 MG, 2X/DAY
     Route: 065
  11. RANITIDINE [Interacting]
     Active Substance: RANITIDINE
     Dosage: 2 DF, 1X/DAY
     Route: 065
  12. ARIPIPRAZOLE [Interacting]
     Active Substance: ARIPIPRAZOLE
     Dosage: UNK
     Route: 065
  13. BREXPIPRAZOLE [Interacting]
     Active Substance: BREXPIPRAZOLE
     Dosage: UNK
     Route: 065
  14. CLOTRIMAZOLE [Interacting]
     Active Substance: CLOTRIMAZOLE
     Indication: Rash
     Dosage: UNK UNK, 2X/DAY
     Route: 065
  15. DEPAKOTE [Interacting]
     Active Substance: DIVALPROEX SODIUM
     Dosage: 1.0 DF, 2X/DAY
     Route: 065
  16. DEPAKOTE [Interacting]
     Active Substance: DIVALPROEX SODIUM
     Dosage: 1 DF
     Route: 065
  17. DEPAKOTE [Interacting]
     Active Substance: DIVALPROEX SODIUM
     Dosage: 2 DF, 1X/DAY
     Route: 065
  18. DEPAKOTE [Interacting]
     Active Substance: DIVALPROEX SODIUM
     Dosage: UNK
     Route: 065
  19. DEPAKOTE [Interacting]
     Active Substance: DIVALPROEX SODIUM
     Dosage: 2 DF, 1X/DAY
     Route: 065
  20. FLUVIRAL [Interacting]
     Active Substance: INFLUENZA VIRUS VACCINE
     Dosage: UNK
     Route: 065
  21. ACETAMINOPHEN [Interacting]
     Active Substance: ACETAMINOPHEN
     Indication: Pyrexia
     Dosage: 2 DF, UNK
     Route: 065
  22. ACETAMINOPHEN [Interacting]
     Active Substance: ACETAMINOPHEN
     Indication: Pain
  23. LEVOTHYROXINE SODIUM [Interacting]
     Active Substance: LEVOTHYROXINE SODIUM
     Dosage: 1 DF, UNK
     Route: 065
  24. ZOPICLONE [Interacting]
     Active Substance: ZOPICLONE
     Indication: Insomnia
     Dosage: 1 DF, 1X/DAY
     Route: 065
  25. OLANZAPINE [Interacting]
     Active Substance: OLANZAPINE
     Indication: Mood altered
     Dosage: 1 DF, 2X/DAY
     Route: 065
  26. OLANZAPINE [Interacting]
     Active Substance: OLANZAPINE
     Dosage: 2 DF, 1X/DAY
     Route: 065
  27. OLANZAPINE [Interacting]
     Active Substance: OLANZAPINE
     Dosage: UNK
     Route: 065
  28. OLANZAPINE [Interacting]
     Active Substance: OLANZAPINE
     Dosage: 1 DF, 1X/DAY
     Route: 065
  29. OLANZAPINE [Interacting]
     Active Substance: OLANZAPINE
     Indication: Mood altered
     Dosage: UNK
  30. OLANZAPINE [Interacting]
     Active Substance: OLANZAPINE
     Dosage: 1 DF, 2X/DAY
  31. VITAMIN D3 [Interacting]
     Active Substance: CHOLECALCIFEROL
     Dosage: 1.0 DF, UNK
     Route: 065
  32. VITAMIN D3 [Interacting]
     Active Substance: CHOLECALCIFEROL
     Dosage: UNK
     Route: 065
  33. ESTRADIOL [Interacting]
     Active Substance: ESTRADIOL
     Dosage: 1 DF
     Route: 067
  34. PREMARIN WITH METHYLTESTOSTERONE [Interacting]
     Active Substance: ESTROGENS, CONJUGATED\METHYLTESTOSTERONE
     Dosage: 5 G
     Route: 065
  35. ACETAMINOPHEN\CAFFEINE [Interacting]
     Active Substance: ACETAMINOPHEN\CAFFEINE
     Indication: Pyrexia
     Dosage: 3 DF
     Route: 065
  36. ACETAMINOPHEN\CAFFEINE [Interacting]
     Active Substance: ACETAMINOPHEN\CAFFEINE
     Indication: Pain
  37. ACETAMINOPHEN\CARBINOXAMINE MALEATE\PENTOXYVERINE CITRATE\PHENYLEPHRIN [Interacting]
     Active Substance: ACETAMINOPHEN\CARBINOXAMINE MALEATE\PENTOXYVERINE CITRATE\PHENYLEPHRINE HYDROCHLORIDE
     Dosage: UNK
     Route: 065

REACTIONS (4)
  - Drug interaction [Unknown]
  - Drug level increased [Unknown]
  - Electrocardiogram QT prolonged [Unknown]
  - Schizoaffective disorder [Unknown]
